FAERS Safety Report 6769400-9 (Version None)
Quarter: 2010Q2

REPORT INFORMATION
  Report Type: 
  Country: None (occurrence: None)
  Receive Date: 20100615
  Receipt Date: 20100609
  Transmission Date: 20101027
  Serious: Yes (Death, Other)
  Sender: FDA-Public Use
  Company Number: PHHY2010US30943

PATIENT
  Sex: Male
  Weight: 68 kg

DRUGS (7)
  1. EXJADE [Suspect]
     Indication: MYELODYSPLASTIC SYNDROME
     Dosage: 1500 MG DAILY
     Route: 048
     Dates: start: 20081001, end: 20100403
  2. FEXOFENADINE [Concomitant]
  3. BLOOD TRANSFUSION, AUXILIARY PRODUCTS [Concomitant]
  4. NEUPOGEN [Concomitant]
     Indication: NEUTROPENIA
     Dosage: 5Q, 300 MCG EVERY WEEK
     Dates: start: 20090309
  5. PROCRIT                            /00909301/ [Concomitant]
     Indication: ANAEMIA
     Dosage: 50000 U EVERY WEEK
     Dates: start: 20090126
  6. SIMVASTATIN [Concomitant]
     Dosage: 20 MG
     Route: 048
  7. TRAZODONE HYDROCHLORIDE [Concomitant]
     Dosage: 150 MG, QD
     Route: 048

REACTIONS (7)
  - COUGH [None]
  - DYSPNOEA [None]
  - MULTIPLE MYELOMA [None]
  - PNEUMONIA [None]
  - RENAL FAILURE [None]
  - RESPIRATORY FAILURE [None]
  - SEPSIS [None]
